FAERS Safety Report 25798475 (Version 1)
Quarter: 2025Q3

REPORT INFORMATION
  Report Type: Report from Study
  Country: AR (occurrence: AR)
  Receive Date: 20250913
  Receipt Date: 20250913
  Transmission Date: 20251020
  Serious: Yes (Other)
  Sender: ABBVIE
  Company Number: AR-ABBVIE-6454784

PATIENT
  Age: 75 Year
  Sex: Female

DRUGS (1)
  1. SKYRIZI [Suspect]
     Active Substance: RISANKIZUMAB-RZAA
     Indication: Psoriasis
     Dosage: 150 MG/ 90 DAYS
     Route: 058
     Dates: start: 20211206

REACTIONS (2)
  - Carotid artery occlusion [Recovered/Resolved]
  - Medical device site bruise [Not Recovered/Not Resolved]

NARRATIVE: CASE EVENT DATE: 20240101
